FAERS Safety Report 9288630 (Version 1)
Quarter: 2012Q4

REPORT INFORMATION
  Report Type: Spontaneous
  Country: FR (occurrence: None)
  Receive Date: 20120912
  Receipt Date: 20120912
  Transmission Date: 20130627
  Serious: Yes (Other)
  Sender: FDA-Public Use
  Company Number: 215556

PATIENT
  Age: 54 Year
  Sex: Male
  Weight: 70 kg

DRUGS (4)
  1. INNOHEP [Suspect]
     Indication: DVT PROPHYLAXIS
     Route: 058
     Dates: start: 20110802
  2. DOLIPRANE (PARACETAMOL) [Concomitant]
  3. VOLTARENE (DICLOFENAC SODIUM) [Concomitant]
  4. INEXIUM (ESOMEPRAZOLE MAGNESIUM) [Concomitant]

REACTIONS (2)
  - Deep vein thrombosis [None]
  - Phlebitis [None]
